FAERS Safety Report 25357442 (Version 3)
Quarter: 2025Q2

REPORT INFORMATION
  Report Type: Report from Study
  Country: NL (occurrence: NL)
  Receive Date: 20250526
  Receipt Date: 20250609
  Transmission Date: 20250717
  Serious: Yes (Life-Threatening, Hospitalization)
  Sender: TEVA
  Company Number: NL-TEVA-VS-3334669

PATIENT
  Age: 66 Year
  Sex: Female

DRUGS (5)
  1. FLUDARABINE [Suspect]
     Active Substance: FLUDARABINE PHOSPHATE
     Indication: Malignant melanoma
     Route: 065
  2. CYCLOPHOSPHAMIDE [Suspect]
     Active Substance: CYCLOPHOSPHAMIDE
     Indication: Malignant melanoma
     Route: 065
  3. LYMPHOCYTES [Suspect]
     Active Substance: LYMPHOCYTES
     Indication: Malignant melanoma
     Route: 065
  4. NIVOLUMAB [Suspect]
     Active Substance: NIVOLUMAB
     Indication: Malignant melanoma
     Route: 065
  5. ALDESLEUKIN [Suspect]
     Active Substance: ALDESLEUKIN
     Indication: Malignant melanoma
     Route: 042

REACTIONS (4)
  - Drug ineffective [Unknown]
  - Respiratory failure [Recovered/Resolved]
  - Cardiac failure [Recovered/Resolved]
  - Cardiotoxicity [Recovered/Resolved]
